FAERS Safety Report 4319615-4 (Version None)
Quarter: 2004Q1

REPORT INFORMATION
  Report Type: 
  Country: None (occurrence: None)
  Receive Date: 20040316
  Receipt Date: 20040304
  Transmission Date: 20041129
  Serious: No
  Sender: FDA-Public Use
  Company Number: BRO-007194

PATIENT
  Age: 61 Year
  Sex: Male

DRUGS (2)
  1. IOPAMIDOL-370 [Suspect]
     Indication: ANGINA PECTORIS
     Route: 022
     Dates: start: 20040211, end: 20040211
  2. IOPAMIDOL-370 [Suspect]
     Indication: CORONARY ANGIOPLASTY
     Route: 022
     Dates: start: 20040211, end: 20040211

REACTIONS (7)
  - ANOREXIA [None]
  - COMA [None]
  - HYPONATRAEMIA [None]
  - POST PROCEDURAL COMPLICATION [None]
  - POST PROCEDURAL NAUSEA [None]
  - POST PROCEDURAL VOMITING [None]
  - POSTOPERATIVE FEVER [None]
